FAERS Safety Report 8623047-8 (Version None)
Quarter: 2012Q3

REPORT INFORMATION
  Report Type: 
  Country: None (occurrence: None)
  Receive Date: 20120827
  Receipt Date: 20120820
  Transmission Date: 20120928
  Serious: Yes (Hospitalization)
  Sender: FDA-Public Use
  Company Number: US-JNJFOC-20120810685

PATIENT
  Sex: Female
  Weight: 42 kg

DRUGS (5)
  1. REMICADE [Suspect]
     Indication: INFLAMMATORY BOWEL DISEASE
     Route: 042
     Dates: start: 20091029
  2. VITAMIN D [Concomitant]
  3. AZATHIOPRINE SODIUM [Concomitant]
  4. MIRALAX [Concomitant]
  5. ANTIBIOTICS [Concomitant]

REACTIONS (1)
  - FEMALE GENITAL TRACT FISTULA [None]
